FAERS Safety Report 8184750-X (Version None)
Quarter: 2012Q1

REPORT INFORMATION
  Report Type: 
  Country: None (occurrence: None)
  Receive Date: 20120305
  Receipt Date: 20120305
  Transmission Date: 20120608
  Serious: Yes (Other)
  Sender: FDA-Public Use
  Company Number: None

PATIENT
  Age: 73 Year
  Sex: Female
  Weight: 78.471 kg

DRUGS (2)
  1. ZOCOR [Suspect]
     Route: 048
  2. LIPITOR [Concomitant]

REACTIONS (13)
  - MUSCULAR WEAKNESS [None]
  - GAIT DISTURBANCE [None]
  - DECREASED APPETITE [None]
  - DEMYELINATING POLYNEUROPATHY [None]
  - BLOOD ALKALINE PHOSPHATASE INCREASED [None]
  - BALANCE DISORDER [None]
  - FATIGUE [None]
  - ASTHENIA [None]
  - BLOOD CHOLESTEROL INCREASED [None]
  - ABDOMINAL PAIN UPPER [None]
  - BLOOD TRIGLYCERIDES INCREASED [None]
  - CHROMATURIA [None]
  - ALANINE AMINOTRANSFERASE INCREASED [None]
